FAERS Safety Report 6288638-0 (Version None)
Quarter: 2009Q3

REPORT INFORMATION
  Report Type: 
  Country: None (occurrence: None)
  Receive Date: 20090729
  Receipt Date: 20090723
  Transmission Date: 20100115
  Serious: Yes (Death)
  Sender: FDA-Public Use
  Company Number: FR-TEVA-203428ISR

PATIENT
  Age: 50 Year
  Sex: Male

DRUGS (4)
  1. CARBOPLATIN [Suspect]
     Indication: HEAD AND NECK CANCER
     Route: 042
     Dates: start: 20080623, end: 20080807
  2. FLUOROURACIL [Suspect]
     Indication: HEAD AND NECK CANCER
     Route: 042
  3. CETUXIMAB [Suspect]
     Route: 042
  4. RADIOTHERAPY [Suspect]

REACTIONS (2)
  - APHAGIA [None]
  - LARYNGEAL NECROSIS [None]
